FAERS Safety Report 8888992 (Version 2)
Quarter: 2015Q1

REPORT INFORMATION
  Report Type: Report from Study
  Country: US (occurrence: US)
  Receive Date: 20121106
  Receipt Date: 20150126
  Transmission Date: 20150721
  Serious: Yes (Hospitalization)
  Sender: FDA-Public Use
  Company Number: US-ROCHE-1139901

PATIENT
  Sex: Male
  Weight: 18.2 kg

DRUGS (7)
  1. PROTROPIN [Suspect]
     Active Substance: SOMATREM
     Indication: DWARFISM
     Dosage: DILUTE WITH 2 CC
     Route: 058
     Dates: start: 199506
  2. PROTROPIN [Suspect]
     Active Substance: SOMATREM
     Indication: HYPOPITUITARISM
     Route: 058
  3. PROTROPIN [Suspect]
     Active Substance: SOMATREM
     Route: 058
  4. SYNTHROID [Concomitant]
     Active Substance: LEVOTHYROXINE SODIUM
     Route: 065
  5. CORTEF [Concomitant]
     Active Substance: HYDROCORTISONE
     Route: 065
  6. CORTEF [Concomitant]
     Active Substance: HYDROCORTISONE
     Dosage: FREQUENCY: 1/2 IN 12 HOURS
     Route: 065
  7. SYNTHROID [Concomitant]
     Active Substance: LEVOTHYROXINE SODIUM
     Route: 065

REACTIONS (4)
  - Muscle spasms [Unknown]
  - Asthma [Unknown]
  - Enuresis [Unknown]
  - Pneumonia [Unknown]
